FAERS Safety Report 25037060 (Version 2)
Quarter: 2025Q2

REPORT INFORMATION
  Report Type: Report from Study
  Country: US (occurrence: US)
  Receive Date: 20250304
  Receipt Date: 20250503
  Transmission Date: 20250717
  Serious: Yes (Other)
  Sender: NOVARTIS
  Company Number: US-002147023-NVSC2025US002318

PATIENT
  Sex: Female

DRUGS (1)
  1. KESIMPTA [Suspect]
     Active Substance: OFATUMUMAB
     Indication: Relapsing multiple sclerosis
     Route: 065
     Dates: start: 20241108

REACTIONS (5)
  - Pneumonia [Unknown]
  - Therapeutic response shortened [Unknown]
  - Headache [Unknown]
  - Pain in extremity [Unknown]
  - Neuralgia [Unknown]
